FAERS Safety Report 7252722-5 (Version None)
Quarter: 2011Q1

REPORT INFORMATION
  Report Type: 
  Country: None (occurrence: None)
  Receive Date: 20110129
  Receipt Date: 20100405
  Transmission Date: 20110831
  Serious: No
  Sender: FDA-Public Use
  Company Number: US-ABBOTT-10P-163-0636583-00

PATIENT
  Sex: Female

DRUGS (2)
  1. HUMIRA [Suspect]
  2. HUMIRA [Suspect]
     Indication: CROHN'S DISEASE
     Dates: start: 20091015, end: 20100125

REACTIONS (7)
  - VOMITING [None]
  - FATIGUE [None]
  - PAPULE [None]
  - RASH MACULAR [None]
  - DRY SKIN [None]
  - MALAISE [None]
  - INJECTION SITE ERYTHEMA [None]
